FAERS Safety Report 9748796 (Version 2)
Quarter: 2013Q4

REPORT INFORMATION
  Report Type: Spontaneous
  Country: US (occurrence: US)
  Receive Date: 20131212
  Receipt Date: 20131212
  Transmission Date: 20140711
  Serious: Yes (Other)
  Sender: FDA-Public Use
  Company Number: US-INCYTE CORPORATION-2013IN001321

PATIENT
  Age: 60 Year
  Sex: Male
  Weight: 80.73 kg

DRUGS (5)
  1. JAKAFI [Suspect]
     Indication: MYELOFIBROSIS
     Dosage: 25 MG, BID
     Route: 048
     Dates: start: 20130521
  2. POTASSIUM CITRATE [Concomitant]
  3. ALLOPURINOL [Concomitant]
  4. ASPIRIN [Concomitant]
     Dosage: 81 MG, UNK
  5. PRILOSEC [Concomitant]

REACTIONS (4)
  - Haemoglobin decreased [Recovered/Resolved]
  - Oedema peripheral [Unknown]
  - Epistaxis [Unknown]
  - Headache [Unknown]
